FAERS Safety Report 13863681 (Version 3)
Quarter: 2025Q3

REPORT INFORMATION
  Report Type: Spontaneous
  Country: EU (occurrence: EU)
  Receive Date: 20170814
  Receipt Date: 20250710
  Transmission Date: 20251021
  Serious: Yes (Other)
  Sender: MYLAN
  Company Number: EU-MYLANLABS-2017M1049500

PATIENT
  Age: 14 Year

DRUGS (44)
  1. LEVETIRACETAM [Interacting]
     Active Substance: LEVETIRACETAM
     Indication: Partial seizures
     Dosage: 3500 MG, QD
  2. LEVETIRACETAM [Interacting]
     Active Substance: LEVETIRACETAM
     Indication: Partial seizures
     Dosage: 3500 MG, QD
     Route: 065
  3. LEVETIRACETAM [Interacting]
     Active Substance: LEVETIRACETAM
     Dosage: 3500 MG, QD
     Route: 065
  4. LEVETIRACETAM [Interacting]
     Active Substance: LEVETIRACETAM
     Dosage: 3500 MG, QD
  5. LEVETIRACETAM [Interacting]
     Active Substance: LEVETIRACETAM
     Dosage: 2000 MG, QD
     Route: 065
  6. LEVETIRACETAM [Interacting]
     Active Substance: LEVETIRACETAM
     Dosage: 2000 MG, QD
     Route: 065
  7. LEVETIRACETAM [Interacting]
     Active Substance: LEVETIRACETAM
     Dosage: 2000 MG, QD
  8. LEVETIRACETAM [Interacting]
     Active Substance: LEVETIRACETAM
     Dosage: 2000 MG, QD
  9. LEVETIRACETAM [Interacting]
     Active Substance: LEVETIRACETAM
  10. LEVETIRACETAM [Interacting]
     Active Substance: LEVETIRACETAM
     Route: 065
  11. LEVETIRACETAM [Interacting]
     Active Substance: LEVETIRACETAM
  12. LEVETIRACETAM [Interacting]
     Active Substance: LEVETIRACETAM
     Route: 065
  13. LACOSAMIDE [Interacting]
     Active Substance: LACOSAMIDE
     Indication: Partial seizures
     Dosage: (3.74 MG/KG/D)
     Route: 065
  14. LACOSAMIDE [Interacting]
     Active Substance: LACOSAMIDE
     Indication: Partial seizures
     Dosage: (3.74 MG/KG/D)
  15. LACOSAMIDE [Interacting]
     Active Substance: LACOSAMIDE
     Dosage: (3.74 MG/KG/D)
  16. LACOSAMIDE [Interacting]
     Active Substance: LACOSAMIDE
     Dosage: (3.74 MG/KG/D)
     Route: 065
  17. LACOSAMIDE [Interacting]
     Active Substance: LACOSAMIDE
     Dosage: 300 MG, QD
     Route: 065
  18. LACOSAMIDE [Interacting]
     Active Substance: LACOSAMIDE
     Dosage: 300 MG, QD
  19. LACOSAMIDE [Interacting]
     Active Substance: LACOSAMIDE
     Dosage: 300 MG, QD
  20. LACOSAMIDE [Interacting]
     Active Substance: LACOSAMIDE
     Dosage: 300 MG, QD
     Route: 065
  21. LACOSAMIDE [Interacting]
     Active Substance: LACOSAMIDE
  22. LACOSAMIDE [Interacting]
     Active Substance: LACOSAMIDE
  23. LACOSAMIDE [Interacting]
     Active Substance: LACOSAMIDE
     Route: 065
  24. LACOSAMIDE [Interacting]
     Active Substance: LACOSAMIDE
     Route: 065
  25. LACOSAMIDE [Interacting]
     Active Substance: LACOSAMIDE
  26. LACOSAMIDE [Interacting]
     Active Substance: LACOSAMIDE
  27. LACOSAMIDE [Interacting]
     Active Substance: LACOSAMIDE
     Route: 065
  28. LACOSAMIDE [Interacting]
     Active Substance: LACOSAMIDE
     Route: 065
  29. VALPROIC ACID [Interacting]
     Active Substance: VALPROIC ACID
     Indication: Partial seizures
     Dosage: 1750 MG, QD
     Route: 065
  30. VALPROIC ACID [Interacting]
     Active Substance: VALPROIC ACID
     Indication: Partial seizures
     Dosage: 1750 MG, QD
  31. VALPROIC ACID [Interacting]
     Active Substance: VALPROIC ACID
     Dosage: 1750 MG, QD
  32. VALPROIC ACID [Interacting]
     Active Substance: VALPROIC ACID
     Dosage: 1750 MG, QD
     Route: 065
  33. VALPROIC ACID [Interacting]
     Active Substance: VALPROIC ACID
     Dosage: 1500 MG, QD
     Route: 065
  34. VALPROIC ACID [Interacting]
     Active Substance: VALPROIC ACID
     Dosage: 1500 MG, QD
  35. VALPROIC ACID [Interacting]
     Active Substance: VALPROIC ACID
     Dosage: 1500 MG, QD
  36. VALPROIC ACID [Interacting]
     Active Substance: VALPROIC ACID
     Dosage: 1500 MG, QD
     Route: 065
  37. VALPROIC ACID [Interacting]
     Active Substance: VALPROIC ACID
     Dosage: 1000 MG, QD
  38. VALPROIC ACID [Interacting]
     Active Substance: VALPROIC ACID
     Dosage: 1000 MG, QD
  39. VALPROIC ACID [Interacting]
     Active Substance: VALPROIC ACID
     Dosage: 1000 MG, QD
     Route: 065
  40. VALPROIC ACID [Interacting]
     Active Substance: VALPROIC ACID
     Dosage: 1000 MG, QD
     Route: 065
  41. VALPROIC ACID [Interacting]
     Active Substance: VALPROIC ACID
  42. VALPROIC ACID [Interacting]
     Active Substance: VALPROIC ACID
  43. VALPROIC ACID [Interacting]
     Active Substance: VALPROIC ACID
     Route: 065
  44. VALPROIC ACID [Interacting]
     Active Substance: VALPROIC ACID
     Route: 065

REACTIONS (2)
  - Drug interaction [Unknown]
  - Anticonvulsant drug level decreased [Unknown]
